FAERS Safety Report 6389233-5 (Version None)
Quarter: 2009Q4

REPORT INFORMATION
  Report Type: 
  Country: None (occurrence: None)
  Receive Date: 20091006
  Receipt Date: 20090928
  Transmission Date: 20100525
  Serious: Yes (Hospitalization)
  Sender: FDA-Public Use
  Company Number: US-BAYER-200933425NA

PATIENT
  Age: 41 Year
  Sex: Female

DRUGS (1)
  1. BETASERON [Suspect]
     Indication: MULTIPLE SCLEROSIS
     Dosage: FOR APPROXIMATELY 3 TO 4 YEARS
     Dates: start: 19940101

REACTIONS (2)
  - GAIT DISTURBANCE [None]
  - INJECTION SITE CELLULITIS [None]
